FAERS Safety Report 8385380 (Version 4)
Quarter: 2013Q2

REPORT INFORMATION
  Report Type: Spontaneous
  Country: DE (occurrence: DE)
  Receive Date: 20120202
  Receipt Date: 20130405
  Transmission Date: 20140414
  Serious: Yes (Hospitalization, Other)
  Sender: FDA-Public Use
  Company Number: DE-JNJFOC-20120200303

PATIENT
  Age: 76 Year
  Sex: Male

DRUGS (8)
  1. PALEXIA RETARD [Suspect]
     Indication: NEURALGIA
     Dosage: 100 MG 2/DAY
     Route: 048
     Dates: start: 201110, end: 20111123
  2. PALEXIA RETARD [Suspect]
     Indication: NEURALGIA
     Dosage: 50 MG 2/DAY
     Route: 048
     Dates: start: 20111004, end: 201110
  3. METOPROLOL [Concomitant]
     Route: 048
  4. LOSARTAN POTASSIUM/HYDROCHLORTHIAZIDE [Concomitant]
     Indication: HYPERTENSION
     Route: 048
  5. ASS [Concomitant]
     Indication: CORONARY ARTERY DISEASE
     Route: 048
  6. ATOSIL [Concomitant]
     Route: 048
     Dates: start: 201003
  7. GABAPENTIN [Concomitant]
     Route: 048
     Dates: start: 2012
  8. M-LONG [Concomitant]
     Indication: NEURALGIA
     Route: 065

REACTIONS (14)
  - Polyneuropathy [Not Recovered/Not Resolved]
  - Dyskinesia [Recovered/Resolved]
  - Tic [Recovered/Resolved]
  - Restless legs syndrome [Recovered/Resolved]
  - Gait disturbance [Not Recovered/Not Resolved]
  - Hypertensive crisis [Recovered/Resolved]
  - Agitation [Recovered/Resolved]
  - Restlessness [Recovered/Resolved]
  - Lacrimation increased [Unknown]
  - Rhinorrhoea [Unknown]
  - Disorientation [Recovered/Resolved]
  - Tremor [Recovered/Resolved]
  - Balance disorder [Not Recovered/Not Resolved]
  - Memory impairment [Recovered/Resolved]
